FAERS Safety Report 5440155-3 (Version None)
Quarter: 2007Q3

REPORT INFORMATION
  Report Type: 
  Country: None (occurrence: None)
  Receive Date: 20070831
  Receipt Date: 20070824
  Transmission Date: 20080115
  Serious: No
  Sender: FDA-Public Use
  Company Number: A0675738A

PATIENT
  Sex: Female

DRUGS (2)
  1. ALLI [Suspect]
     Indication: EPIGASTRIC DISCOMFORT
     Route: 048
     Dates: start: 20070701
  2. BIRTH CONTROL PILLS [Suspect]
     Indication: CONTRACEPTION
     Route: 048
     Dates: start: 19970101

REACTIONS (3)
  - DRUG EXPOSURE DURING PREGNANCY [None]
  - DRUG INTERACTION [None]
  - PREGNANCY ON ORAL CONTRACEPTIVE [None]
